FAERS Safety Report 4311935-2 (Version None)
Quarter: 2004Q1

REPORT INFORMATION
  Report Type: 
  Country: None (occurrence: None)
  Receive Date: 20040303
  Receipt Date: 20040219
  Transmission Date: 20041129
  Serious: Yes (Death, Hospitalization)
  Sender: FDA-Public Use
  Company Number: FR-JNJFOC-20031105385

PATIENT
  Age: 80 Year
  Sex: Female

DRUGS (6)
  1. RISPERDAL [Suspect]
     Indication: AGITATION
     Dosage: 0.5 MG, 2 IN 1 DAY, ORAL
     Route: 048
     Dates: start: 20030707
  2. SECTRAL [Concomitant]
  3. ^CACIT D3^ (CALCIUM WITH VITAMIN D) [Concomitant]
  4. FOSAMAX [Concomitant]
  5. IMOVANE (ZOPICLONE) [Concomitant]
  6. DIAMICRON (GLICLAZIDE) [Concomitant]

REACTIONS (8)
  - COMA [None]
  - CONFUSIONAL STATE [None]
  - DISORIENTATION [None]
  - DRY MOUTH [None]
  - EXTRAPYRAMIDAL DISORDER [None]
  - ORTHOSTATIC HYPOTENSION [None]
  - PULMONARY CONGESTION [None]
  - SEPTIC SHOCK [None]
